FAERS Safety Report 21835281 (Version 2)
Quarter: 2023Q1

REPORT INFORMATION
  Report Type: Spontaneous
  Country: CH (occurrence: CH)
  Receive Date: 20230109
  Receipt Date: 20230109
  Transmission Date: 20230418
  Serious: Yes (Life-Threatening)
  Sender: FDA-Public Use
  Company Number: None

PATIENT
  Age: 75 Year
  Sex: Female
  Weight: 80 kg

DRUGS (9)
  1. PLENVU [Suspect]
     Active Substance: ASCORBIC ACID\POLYETHYLENE GLYCOL 3350\POTASSIUM CHLORIDE\SODIUM ASCORBATE\SODIUM CHLORIDE\SODIUM SU
     Indication: Colonoscopy
     Dosage: DRUG NAME : PLENVU. DOSE 1 AND 2, AND EXTRA DOSE 1 (3 DOSES TOTAL) ; IN TOTAL
     Route: 048
     Dates: start: 20221205, end: 20221205
  2. XULTOPHY 100/3.6 [Suspect]
     Active Substance: INSULIN DEGLUDEC\LIRAGLUTIDE
     Indication: Insulin-requiring type 2 diabetes mellitus
     Dosage: 46 IU (LONG TERM)
     Route: 058
     Dates: end: 20221207
  3. DULOXETINE HYDROCHLORIDE [Concomitant]
     Active Substance: DULOXETINE HYDROCHLORIDE
     Indication: Depression
     Dosage: 30 MG (LONG TERM)
     Route: 048
  4. POLYETHYLENE GLYCOLS [Concomitant]
     Active Substance: POLYETHYLENE GLYCOLS
     Indication: Constipation
     Dosage: 2 SACHETS/JOUR
     Route: 048
     Dates: end: 20221205
  5. BENSERAZIDE HYDROCHLORIDE\LEVODOPA [Concomitant]
     Active Substance: BENSERAZIDE HYDROCHLORIDE\LEVODOPA
     Indication: Parkinsonism
     Dosage: 125 MG (LONG TERM (1X AT 12H00 AND 1X AT 18H00)
     Route: 048
     Dates: start: 20221205
  6. BENSERAZIDE HYDROCHLORIDE\LEVODOPA [Concomitant]
     Active Substance: BENSERAZIDE HYDROCHLORIDE\LEVODOPA
     Indication: Parkinsonism
     Dosage: 250 MG (LONG TERM (1X AT 08H00 AND 1X AT 22H00)
     Route: 048
  7. RAMIPRIL [Concomitant]
     Active Substance: RAMIPRIL
     Indication: Hypertension
     Dosage: 5 MG (LONG TERM)
     Route: 048
  8. CLORAZEPATE ZENTIVA [Concomitant]
     Indication: Anxiety
     Dosage: 5 MG (LONG TERM  ARR?T LE 7.12.22 MAIS REPRIS VERS LE 10.12.22
     Route: 048
  9. METFORMIN [Suspect]
     Active Substance: METFORMIN HYDROCHLORIDE
     Indication: Insulin-requiring type 2 diabetes mellitus
     Dosage: 1000 MG (LONG TERM)
     Route: 048
     Dates: end: 20221207

REACTIONS (8)
  - Lactic acidosis [Recovered/Resolved]
  - Hypovolaemic shock [Recovered/Resolved]
  - Hypernatraemia [Recovered/Resolved]
  - Acute kidney injury [Recovered/Resolved]
  - Ischaemic hepatitis [Recovered/Resolved]
  - Coma scale abnormal [Recovered/Resolved]
  - Dehydration [Recovered/Resolved]
  - Intentional product use issue [Recovered/Resolved]

NARRATIVE: CASE EVENT DATE: 20221205
